FAERS Safety Report 8129749-4 (Version None)
Quarter: 2012Q1

REPORT INFORMATION
  Report Type: 
  Country: None (occurrence: None)
  Receive Date: 20120103
  Receipt Date: 20110930
  Transmission Date: 20120608
  Serious: No
  Sender: FDA-Public Use
  Company Number: AE-2011-001122

PATIENT
  Age: 48 Year
  Sex: Male

DRUGS (5)
  1. RIBAVIRIN [Concomitant]
  2. LOSARTAN POTASSIUM [Concomitant]
  3. HYDROCHLOROTHIAZIDE [Concomitant]
  4. INCIVEK [Suspect]
     Dosage: 2250 MG (750 MG, 3 IN 1 D), ORAL
     Route: 048
     Dates: start: 20110808
  5. PEGASYS [Concomitant]

REACTIONS (2)
  - ANORECTAL DISCOMFORT [None]
  - FATIGUE [None]
